FAERS Safety Report 13815897 (Version 2)
Quarter: 2017Q4

REPORT INFORMATION
  Report Type: Spontaneous
  Country: FR (occurrence: FR)
  Receive Date: 20170731
  Receipt Date: 20171006
  Transmission Date: 20180320
  Serious: Yes (Other)
  Sender: FDA-Public Use
  Company Number: FR-JNJFOC-20161217109

PATIENT
  Age: 51 Year
  Sex: Male

DRUGS (3)
  1. EPITOMAX [Suspect]
     Active Substance: TOPIRAMATE
     Indication: EPILEPSY
     Route: 048
     Dates: end: 20170102
  2. EPITOMAX [Suspect]
     Active Substance: TOPIRAMATE
     Indication: EPILEPSY
     Route: 048
     Dates: start: 201609
  3. DEPAKINE [Concomitant]
     Active Substance: VALPROATE SODIUM
     Indication: PRODUCT USED FOR UNKNOWN INDICATION
     Route: 065
     Dates: end: 201704

REACTIONS (7)
  - Vitrectomy [Unknown]
  - Visual acuity reduced [Recovered/Resolved]
  - Eye oedema [Unknown]
  - Aggression [Recovered/Resolved]
  - Visual impairment [Recovered/Resolved]
  - Eye ulcer [Unknown]
  - Anger [Recovered/Resolved]

NARRATIVE: CASE EVENT DATE: 201609
